FAERS Safety Report 7429820-6 (Version None)
Quarter: 2011Q2

REPORT INFORMATION
  Report Type: 
  Country: None (occurrence: None)
  Receive Date: 20110421
  Receipt Date: 20110411
  Transmission Date: 20111010
  Serious: Yes (Other)
  Sender: FDA-Public Use
  Company Number: PHHY2011US30246

PATIENT
  Age: 70 Year
  Sex: Female

DRUGS (5)
  1. LASIX [Concomitant]
  2. TASIGNA [Suspect]
     Dosage: 200 MG, UNK
  3. VITAMINS [Concomitant]
  4. POTASSIUM [Concomitant]
  5. MEVACOR [Concomitant]

REACTIONS (6)
  - LIMB DISCOMFORT [None]
  - PAIN [None]
  - COUGH [None]
  - FATIGUE [None]
  - HEADACHE [None]
  - DRUG ADMINISTRATION ERROR [None]
